FAERS Safety Report 16057296 (Version 1)
Quarter: 2019Q1

REPORT INFORMATION
  Report Type: Spontaneous
  Country: US (occurrence: US)
  Receive Date: 20190311
  Receipt Date: 20190311
  Transmission Date: 20190418
  Serious: No
  Sender: FDA-Public Use
  Company Number: US-PFIZER INC-2019095135

PATIENT
  Age: 39 Year
  Sex: Female

DRUGS (1)
  1. HEPARIN SODIUM. [Suspect]
     Active Substance: HEPARIN SODIUM
     Dosage: 5000 IU, 4X/DAY (Q6H)
     Route: 058

REACTIONS (8)
  - Alopecia [Unknown]
  - Haemoglobin abnormal [Unknown]
  - Blood glucose decreased [Unknown]
  - Headache [Unknown]
  - White blood cell disorder [Unknown]
  - Onychoclasis [Unknown]
  - Alanine aminotransferase decreased [Unknown]
  - Platelet count abnormal [Unknown]
